FAERS Safety Report 5228018-X (Version None)
Quarter: 2007Q1

REPORT INFORMATION
  Report Type: 
  Country: None (occurrence: None)
  Receive Date: 20061205
  Receipt Date: 20061024
  Transmission Date: 20070707
  Serious: No
  Sender: FDA-Public Use
  Company Number: PHEH2006US13320

PATIENT
  Age: 68 Year
  Sex: Female

DRUGS (1)
  1. EXJADE (*CGP 72670*) DISPENSIBLE TABLET [Suspect]
     Dosage: 20 MG, QD, ORAL
     Route: 048

REACTIONS (1)
  - PAIN IN JAW [None]
